FAERS Safety Report 25363675 (Version 1)
Quarter: 2025Q2

REPORT INFORMATION
  Report Type: Spontaneous
  Country: RU (occurrence: RU)
  Receive Date: 20250527
  Receipt Date: 20250527
  Transmission Date: 20250717
  Serious: Yes (Other)
  Sender: BAYER HEALTHCARE PHARMACEUTICALS INC.
  Company Number: RU-BAYER-2025A067921

PATIENT
  Age: 38 Year
  Sex: Female

DRUGS (1)
  1. DIENOGEST\ESTRADIOL VALERATE [Suspect]
     Active Substance: DIENOGEST\ESTRADIOL VALERATE
     Indication: Contraception
     Route: 048
     Dates: start: 202411

REACTIONS (3)
  - Ectopic pregnancy under hormonal contraception [Recovered/Resolved]
  - Drug ineffective [None]
  - Salpingectomy [None]

NARRATIVE: CASE EVENT DATE: 20250401
